FAERS Safety Report 7709467-4 (Version None)
Quarter: 2011Q3

REPORT INFORMATION
  Report Type: 
  Country: None (occurrence: None)
  Receive Date: 20110825
  Receipt Date: 20110823
  Transmission Date: 20111222
  Serious: Yes (Hospitalization, Other)
  Sender: FDA-Public Use
  Company Number: CO-PFIZER INC-2009262103

PATIENT
  Age: 78 Year
  Sex: Female
  Weight: 50 kg

DRUGS (8)
  1. ASPIRIN [Concomitant]
     Indication: COAGULOPATHY
     Dosage: 100 MG, 1X/DAY
     Route: 048
  2. ZOLOFT [Suspect]
     Indication: DEPRESSION
     Dosage: 100 MG, 1X/DAY
     Route: 048
     Dates: start: 20061122
  3. AKATINOL [Concomitant]
     Indication: OSTEOPOROSIS
     Dosage: 10 MG, 2X/DAY
     Route: 048
  4. LEVOTHYROXINE SODIUM [Concomitant]
     Indication: THYROID DISORDER
     Dosage: 75 MG, 1X/DAY
  5. FOSAMAX [Concomitant]
     Indication: OSTEOPOROSIS
     Dosage: 70 MG, WEEKLY
     Dates: start: 20070101
  6. CLONAZEPAM [Concomitant]
     Dosage: 2 MG, 1X/DAY
  7. LIPITOR [Suspect]
     Indication: BLOOD CHOLESTEROL INCREASED
     Dosage: 40 MG, 1X/DAY
     Route: 048
     Dates: start: 20080226
  8. MIRAPEX [Concomitant]
     Indication: EPILEPSY
     Dosage: 0.25 MG, 2X/DAY
     Route: 048
     Dates: start: 20080301

REACTIONS (5)
  - HAEMORRHAGE [None]
  - EPILEPSY [None]
  - RECTAL CANCER [None]
  - HAEMATOCHEZIA [None]
  - ABASIA [None]
